FAERS Safety Report 5869885-6 (Version None)
Quarter: 2008Q3

REPORT INFORMATION
  Report Type: 
  Country: None (occurrence: None)
  Receive Date: 20080904
  Receipt Date: 20080825
  Transmission Date: 20090109
  Serious: Yes (Other)
  Sender: FDA-Public Use
  Company Number: PHBS2008AU05540

PATIENT
  Age: 10 Year
  Sex: Female

DRUGS (1)
  1. CARBAMAZEPINE [Suspect]
     Indication: EPILEPSY

REACTIONS (35)
  - BLOOD ALBUMIN DECREASED [None]
  - BLOOD ALKALINE PHOSPHATASE INCREASED [None]
  - CONJUNCTIVITIS [None]
  - COUGH [None]
  - CULTURE [None]
  - DRUG LEVEL INCREASED [None]
  - DYSPNOEA [None]
  - EOSINOPHILIA [None]
  - FACE OEDEMA [None]
  - HYPERSENSITIVITY [None]
  - JOINT RANGE OF MOTION DECREASED [None]
  - LIP SWELLING [None]
  - LIVER TENDERNESS [None]
  - LYMPHADENITIS [None]
  - LYMPHADENOPATHY [None]
  - LYMPHOCYTOSIS [None]
  - MOUTH ULCERATION [None]
  - NEUTROPHILIA [None]
  - OEDEMA PERIPHERAL [None]
  - PAIN IN EXTREMITY [None]
  - PULSE PRESSURE ABNORMAL [None]
  - PYREXIA [None]
  - PYURIA [None]
  - RASH [None]
  - RASH MACULO-PAPULAR [None]
  - RASH PRURITIC [None]
  - RED BLOOD CELL SEDIMENTATION RATE INCREASED [None]
  - SKIN FISSURES [None]
  - SKIN INJURY [None]
  - STOMATITIS [None]
  - TACHYCARDIA [None]
  - TENDON PAIN [None]
  - TENDONITIS [None]
  - TRANSAMINASES INCREASED [None]
  - WEIGHT BEARING DIFFICULTY [None]
